FAERS Safety Report 6636357-0 (Version None)
Quarter: 2010Q1

REPORT INFORMATION
  Report Type: 
  Country: None (occurrence: None)
  Receive Date: 20100316
  Receipt Date: 20100315
  Transmission Date: 20100710
  Serious: Yes (Life-Threatening)
  Sender: FDA-Public Use
  Company Number: AU-ROCHE-690945

PATIENT
  Age: 53 Year
  Sex: Female

DRUGS (2)
  1. TAMIFLU [Suspect]
     Indication: H1N1 INFLUENZA
     Dosage: DOSAGE NOT REPORTED
     Route: 065
     Dates: start: 20100310
  2. ANTIBIOTIC NOS [Concomitant]
     Indication: H1N1 INFLUENZA
     Dosage: DOSAGE NOT REPORTED
     Dates: start: 20100310

REACTIONS (1)
  - DRUG INEFFECTIVE [None]
